FAERS Safety Report 9534511 (Version 1)
Quarter: 2013Q3

REPORT INFORMATION
  Report Type: Spontaneous
  Country: GB (occurrence: GB)
  Receive Date: 20130918
  Receipt Date: 20130918
  Transmission Date: 20140515
  Serious: Yes (Other)
  Sender: FDA-Public Use
  Company Number: GB-TEVA-432037ISR

PATIENT
  Age: 78 Year
  Sex: Female

DRUGS (4)
  1. OLANZAPINE [Suspect]
     Indication: VISUAL IMPAIRMENT
  2. LOSARTAN [Suspect]
     Dosage: UNKNOWN
  3. RAMIPRIL [Suspect]
     Dosage: UNKNOWN
  4. SERTRALINE [Suspect]
     Dosage: UNKNOWN

REACTIONS (12)
  - Back pain [Unknown]
  - Condition aggravated [Unknown]
  - Confusional state [Unknown]
  - Constipation [Unknown]
  - Sopor [Unknown]
  - Fall [Unknown]
  - Feeling cold [Unknown]
  - Hallucination [Unknown]
  - Infection [Unknown]
  - Pallor [Unknown]
  - Suspiciousness [Unknown]
  - Gait disturbance [Unknown]
